FAERS Safety Report 4610125-3 (Version None)
Quarter: 2005Q1

REPORT INFORMATION
  Report Type: 
  Country: None (occurrence: None)
  Receive Date: 20050314
  Receipt Date: 20050307
  Transmission Date: 20050727
  Serious: Yes (Other)
  Sender: FDA-Public Use
  Company Number: 2005041603

PATIENT
  Sex: Female

DRUGS (2)
  1. LIPITOR [Suspect]
     Indication: ILL-DEFINED DISORDER
     Dosage: 80 MG (80 MG, 1 IN 1 D), ORAL
     Route: 048
     Dates: start: 19960101
  2. PROCARDIA XL [Suspect]
     Indication: ILL-DEFINED DISORDER
     Dosage: (90 MG, ), ORAL
     Route: 048
     Dates: start: 20050201

REACTIONS (3)
  - COMPLICATIONS OF TRANSPLANTED KIDNEY [None]
  - RENAL FAILURE [None]
  - RENAL TRANSPLANT [None]
